FAERS Safety Report 18147942 (Version 1)
Quarter: 2020Q3

REPORT INFORMATION
  Report Type: Spontaneous
  Country: GB (occurrence: GB)
  Receive Date: 20200813
  Receipt Date: 20200813
  Transmission Date: 20201103
  Serious: Yes (Other)
  Sender: FDA-Public Use
  Company Number: NVSC2020GB224646

PATIENT
  Age: 26 Year
  Sex: Female

DRUGS (3)
  1. PREDNISOLONE. [Suspect]
     Active Substance: PREDNISOLONE
     Indication: TAKAYASU^S ARTERITIS
     Dosage: 60 MG
     Route: 065
  2. METHOTREXATE. [Suspect]
     Active Substance: METHOTREXATE
     Indication: TAKAYASU^S ARTERITIS
     Dosage: 20 MG
     Route: 065
  3. MYCOPHENOLATE MOFETIL. [Suspect]
     Active Substance: MYCOPHENOLATE MOFETIL
     Indication: TAKAYASU^S ARTERITIS
     Dosage: UNK
     Route: 065

REACTIONS (3)
  - Condition aggravated [Unknown]
  - Drug ineffective for unapproved indication [Unknown]
  - Takayasu^s arteritis [Unknown]
